FAERS Safety Report 9592823 (Version 3)
Quarter: 2014Q2

REPORT INFORMATION
  Report Type: Spontaneous
  Country: PT (occurrence: PT)
  Receive Date: 20131004
  Receipt Date: 20140416
  Transmission Date: 20141212
  Serious: Yes (Hospitalization, Other)
  Sender: FDA-Public Use
  Company Number: PHHY2013PT110653

PATIENT
  Age: 66 Year
  Sex: Female
  Weight: 60 kg

DRUGS (7)
  1. ACLASTA [Suspect]
     Indication: OSTEOPOROSIS
     Dosage: UNK UKN, UNK
     Route: 042
     Dates: start: 20130110, end: 20130110
  2. METHOTREXATE [Concomitant]
     Indication: RHEUMATOID ARTHRITIS
     Dosage: 15 MG, WEEKLY
     Route: 048
     Dates: start: 20080925, end: 20130308
  3. FOLIC ACID [Concomitant]
     Indication: RHEUMATOID ARTHRITIS
     Dosage: 5 MG, TWICE WEEKLY
     Route: 048
     Dates: start: 20090925
  4. DICLOFENAC [Concomitant]
     Indication: RHEUMATOID ARTHRITIS
     Dosage: 75 MG, SOS
     Route: 048
     Dates: start: 20060522, end: 20130318
  5. PREDNISOLONE [Concomitant]
     Indication: RHEUMATOID ARTHRITIS
     Dosage: 5 MG, DAILY
     Route: 048
     Dates: start: 20050623
  6. PREDNISOLONE [Concomitant]
     Dosage: 40 MG, DAILY
  7. CALCIUM + VITAMIN D [Concomitant]
     Indication: RHEUMATOID ARTHRITIS
     Dosage: 1500 MG+800MG DAILY
     Route: 048
     Dates: start: 20050623

REACTIONS (7)
  - Nephrotic syndrome [Recovered/Resolved]
  - Blood albumin decreased [Unknown]
  - Protein total decreased [Unknown]
  - Protein urine present [Unknown]
  - Blood urea increased [Unknown]
  - Haemoglobin decreased [Unknown]
  - Blood cholesterol increased [Unknown]
